FAERS Safety Report 9203426 (Version 2)
Quarter: 2013Q2

REPORT INFORMATION
  Report Type: Spontaneous
  Country: GB (occurrence: GB)
  Receive Date: 20130402
  Receipt Date: 20130429
  Transmission Date: 20140414
  Serious: Yes (Hospitalization, Other)
  Sender: FDA-Public Use
  Company Number: GB-PFIZER INC-GBWYE063920JUL07

PATIENT
  Age: 47 Year
  Sex: Female
  Weight: 75 kg

DRUGS (1)
  1. IBUPROFEN [Suspect]
     Dosage: 400 MG, UNK
     Route: 048
     Dates: start: 20070621, end: 20070713

REACTIONS (4)
  - Hypoxia [Recovered/Resolved]
  - Angioedema [Recovering/Resolving]
  - Dyspnoea [Recovering/Resolving]
  - Eyelid oedema [Unknown]
